FAERS Safety Report 13222264 (Version 1)
Quarter: 2017Q1

REPORT INFORMATION
  Report Type: Other
  Country: US (occurrence: US)
  Receive Date: 20170211
  Receipt Date: 20170211
  Transmission Date: 20170428
  Serious: No
  Sender: FDA-Public Use
  Company Number: US-ACORDA-ACO_132343_2016

PATIENT
  Sex: Female

DRUGS (1)
  1. AMPYRA [Suspect]
     Active Substance: DALFAMPRIDINE
     Indication: PRODUCT USED FOR UNKNOWN INDICATION
     Dosage: 10 MG, BID
     Route: 048
     Dates: start: 20160224

REACTIONS (8)
  - Balance disorder [Unknown]
  - Fall [Unknown]
  - Multiple drug therapy [Unknown]
  - Drug interaction [Unknown]
  - Gait disturbance [Unknown]
  - Anxiety [Unknown]
  - Amnesia [Unknown]
  - Arthralgia [Unknown]
